FAERS Safety Report 17922519 (Version 2)
Quarter: 2020Q3

REPORT INFORMATION
  Report Type: Spontaneous
  Country: US (occurrence: US)
  Receive Date: 20200622
  Receipt Date: 20200706
  Transmission Date: 20201103
  Serious: Yes (Death)
  Sender: FDA-Public Use
  Company Number: US-PFIZER INC-2020240152

PATIENT
  Age: 37 Year
  Sex: Male

DRUGS (1)
  1. CHANTIX [Suspect]
     Active Substance: VARENICLINE TARTRATE
     Indication: SMOKING CESSATION THERAPY
     Dosage: UNK, (CHANTIX STARTING PACK)
     Route: 048
     Dates: start: 20200220

REACTIONS (2)
  - Completed suicide [Fatal]
  - Hanging [Fatal]
